FAERS Safety Report 17592972 (Version 1)
Quarter: 2020Q1

REPORT INFORMATION
  Report Type: Report from Study
  Country: PL (occurrence: PL)
  Receive Date: 20200327
  Receipt Date: 20200327
  Transmission Date: 20200409
  Serious: Yes (Other)
  Sender: FDA-Public Use
  Company Number: PL-ASTRAZENECA-2020SE42929

PATIENT
  Age: 64 Year
  Sex: Female

DRUGS (8)
  1. PERINDOPRIL [Concomitant]
     Active Substance: PERINDOPRIL
  2. CLOPIDOGREL [Concomitant]
     Active Substance: CLOPIDOGREL BISULFATE
  3. EPLERENONE. [Concomitant]
     Active Substance: EPLERENONE
  4. QUETIAPINE. [Suspect]
     Active Substance: QUETIAPINE
     Route: 048
  5. POTASSIUM SALTS [Concomitant]
     Active Substance: UNSPECIFIED INGREDIENT
  6. ASPIRIN. [Concomitant]
     Active Substance: ASPIRIN
  7. DILTIAZEM. [Interacting]
     Active Substance: DILTIAZEM
     Route: 065
  8. TORASEMIDE [Concomitant]
     Active Substance: TORSEMIDE

REACTIONS (4)
  - Fall [Unknown]
  - Femoral neck fracture [Unknown]
  - Vision blurred [Unknown]
  - Drug interaction [Unknown]
